FAERS Safety Report 8473631-X (Version None)
Quarter: 2012Q2

REPORT INFORMATION
  Report Type: 
  Country: None (occurrence: None)
  Receive Date: 20120628
  Receipt Date: 20110819
  Transmission Date: 20120825
  Serious: Yes (Other)
  Sender: FDA-Public Use
  Company Number: US-MYLANLABS-2011S1015148

PATIENT
  Age: 39 Year
  Sex: Female

DRUGS (10)
  1. LAMOTRIGINE [Concomitant]
  2. PHENYTOIN [Concomitant]
  3. CALCIUM VIT D [Concomitant]
  4. LEVOTHYROXINE [Concomitant]
  5. THIORIDAZINE HCL [Concomitant]
  6. PREMARIN [Concomitant]
  7. BUSPIRONE HCL [Concomitant]
  8. CLOZAPINE [Suspect]
     Route: 048
     Dates: end: 20110713
  9. CARBAMAZEPINE [Concomitant]
  10. CLOZAPINE [Suspect]
     Route: 048
     Dates: start: 20110718, end: 20110701

REACTIONS (2)
  - LEUKOPENIA [None]
  - GRANULOCYTOPENIA [None]
